FAERS Safety Report 11338033 (Version 1)
Quarter: 2015Q3

REPORT INFORMATION
  Report Type: Spontaneous
  Country: US (occurrence: US)
  Receive Date: 20150803
  Receipt Date: 20150803
  Transmission Date: 20151125
  Serious: No
  Sender: FDA-Public Use
  Company Number: US-ELI_LILLY_AND_COMPANY-US201005003515

PATIENT
  Age: 73 Year
  Sex: Female
  Weight: 68.03 kg

DRUGS (2)
  1. ZYPREXA [Suspect]
     Active Substance: OLANZAPINE
     Indication: NERVE INJURY
     Dosage: 5 MG, DAILY (1/D)
  2. ZYPREXA [Suspect]
     Active Substance: OLANZAPINE
     Dosage: UNK, UNKNOWN

REACTIONS (2)
  - Weight increased [Not Recovered/Not Resolved]
  - Off label use [Not Recovered/Not Resolved]
